FAERS Safety Report 6915282-1 (Version None)
Quarter: 2010Q3

REPORT INFORMATION
  Report Type: 
  Country: None (occurrence: None)
  Receive Date: 20100809
  Receipt Date: 20090819
  Transmission Date: 20110219
  Serious: No
  Sender: FDA-Public Use
  Company Number: US-ABBOTT-09P-163-0593114-00

PATIENT
  Sex: Male

DRUGS (3)
  1. DEPAKOTE ER [Suspect]
     Indication: BIPOLAR DISORDER
  2. DEPAKOTE ER [Suspect]
  3. DIVALPROEX SODIUM [Suspect]
     Indication: PRODUCT USED FOR UNKNOWN INDICATION
     Dosage: NOT REPORTED

REACTIONS (1)
  - HYPONATRAEMIA [None]
